FAERS Safety Report 6507953-6 (Version None)
Quarter: 2009Q4

REPORT INFORMATION
  Report Type: 
  Country: None (occurrence: None)
  Receive Date: 20091221
  Receipt Date: 20091211
  Transmission Date: 20100525
  Serious: Yes (Hospitalization)
  Sender: FDA-Public Use
  Company Number: B0615583A

PATIENT
  Age: 52 Year
  Sex: Male

DRUGS (8)
  1. AMOXICILLIN AND CLAVULANATE POTASSIUM [Suspect]
     Indication: URINARY TRACT INFECTION
     Route: 048
     Dates: start: 20080522, end: 20080603
  2. CLOZARIL [Suspect]
     Indication: SCHIZOPHRENIA
     Route: 048
  3. CLOZARIL [Suspect]
     Dosage: 200MG PER DAY
     Route: 048
     Dates: start: 20080307
  4. CLOZARIL [Suspect]
     Route: 048
  5. CLOZARIL [Suspect]
     Dosage: 200MG PER DAY
     Route: 048
  6. SIMVASTATIN [Concomitant]
     Route: 048
  7. LEVEMIR [Concomitant]
     Route: 058
  8. NOVORAPID [Concomitant]
     Route: 058

REACTIONS (19)
  - CHOLESTASIS [None]
  - CONFUSIONAL STATE [None]
  - CYANOSIS [None]
  - DEHYDRATION [None]
  - DIZZINESS [None]
  - DYSPNOEA [None]
  - FALL [None]
  - FATIGUE [None]
  - GENERAL PHYSICAL HEALTH DETERIORATION [None]
  - HEART RATE INCREASED [None]
  - HYPOXIA [None]
  - INFECTION [None]
  - LIVER FUNCTION TEST ABNORMAL [None]
  - MALAISE [None]
  - PYREXIA [None]
  - SALIVARY HYPERSECRETION [None]
  - SYNCOPE [None]
  - TACHYCARDIA [None]
  - URINARY TRACT INFECTION [None]
